FAERS Safety Report 14724250 (Version 1)
Quarter: 2018Q2

REPORT INFORMATION
  Report Type: Other
  Country: AT (occurrence: AT)
  Receive Date: 20180405
  Receipt Date: 20180405
  Transmission Date: 20180711
  Serious: Yes (Life-Threatening, Hospitalization, Other)
  Sender: FDA-Public Use
  Company Number: AT-TAKEDA-2018TEU002063

PATIENT
  Age: 79 Year
  Sex: Male
  Weight: 80 kg

DRUGS (4)
  1. VIPIDIA [Suspect]
     Active Substance: ALOGLIPTIN BENZOATE
     Indication: DIABETES MELLITUS
     Dosage: 25 MG, QD
     Route: 048
     Dates: start: 201707, end: 20170719
  2. GLICLADA [Concomitant]
     Active Substance: GLICLAZIDE
     Dosage: UNK
     Route: 048
  3. VICARD [Concomitant]
     Dosage: 2 MG, QD
     Route: 048
  4. HYPREN PLUS [Concomitant]
     Dosage: 5 MG/25 MG, QD

REACTIONS (2)
  - Multiple organ dysfunction syndrome [Recovered/Resolved]
  - Pancreatitis [Recovered/Resolved]

NARRATIVE: CASE EVENT DATE: 20170719
